FAERS Safety Report 11767776 (Version 1)
Quarter: 2015Q4

REPORT INFORMATION
  Report Type: Spontaneous
  Country: US (occurrence: None)
  Receive Date: 20151120
  Receipt Date: 20151120
  Transmission Date: 20160304
  Serious: Yes (Hospitalization)
  Sender: FDA-Public Use
  Company Number: None

PATIENT
  Age: 63 Year
  Sex: Female
  Weight: 82.6 kg

DRUGS (20)
  1. CIPROFLOXACIN HCL [Concomitant]
     Active Substance: CIPROFLOXACIN HYDROCHLORIDE
  2. RIFAXIMIN [Concomitant]
     Active Substance: RIFAXIMIN
  3. ROBITUSSIN-DM [Concomitant]
  4. TRAMADOL. [Concomitant]
     Active Substance: TRAMADOL
  5. SOLIFENACIN [Concomitant]
     Active Substance: SOLIFENACIN
  6. LEVEMIR [Concomitant]
     Active Substance: INSULIN DETEMIR
  7. ALBUTEROL. [Concomitant]
     Active Substance: ALBUTEROL
  8. BUMETANIDE. [Concomitant]
     Active Substance: BUMETANIDE
  9. CYCLOBENZAPRINE [Concomitant]
     Active Substance: CYCLOBENZAPRINE
  10. INSULIN ASPART [Concomitant]
     Active Substance: INSULIN ASPART
  11. MONTELUKAST [Concomitant]
     Active Substance: MONTELUKAST SODIUM
  12. SUMATRIPTAN. [Concomitant]
     Active Substance: SUMATRIPTAN
  13. IPRATROPIUM-ALBUTEROL [Concomitant]
     Active Substance: ALBUTEROL\IPRATROPIUM
  14. LACTULOSE. [Concomitant]
     Active Substance: LACTULOSE
  15. HARVONI [Suspect]
     Active Substance: LEDIPASVIR\SOFOSBUVIR
     Indication: HEPATITIS C
     Dosage: 90/400 MG?QD?PO
     Route: 048
     Dates: start: 20150713
  16. PREDNISONE. [Concomitant]
     Active Substance: PREDNISONE
  17. SERTRALINE [Concomitant]
     Active Substance: SERTRALINE HYDROCHLORIDE
  18. BUDESONIDE. [Concomitant]
     Active Substance: BUDESONIDE
  19. METOPROLOL SUCCINATE. [Concomitant]
     Active Substance: METOPROLOL SUCCINATE
  20. BENADRYL [Concomitant]
     Active Substance: DIPHENHYDRAMINE HYDROCHLORIDE

REACTIONS (8)
  - Leukopenia [None]
  - Hepatic encephalopathy [None]
  - Pyrexia [None]
  - Hepatitis C [None]
  - Thrombocytopenia [None]
  - Asthenia [None]
  - Chest pain [None]
  - Myocarditis [None]

NARRATIVE: CASE EVENT DATE: 20151016
